FAERS Safety Report 14861516 (Version 1)
Quarter: 2018Q2

REPORT INFORMATION
  Report Type: Spontaneous
  Country: FI (occurrence: FI)
  Receive Date: 20180508
  Receipt Date: 20180508
  Transmission Date: 20180711
  Serious: Yes (Death)
  Sender: FDA-Public Use
  Company Number: FI-ELI_LILLY_AND_COMPANY-FI201805002314

PATIENT
  Age: 29 Year
  Sex: Male

DRUGS (2)
  1. MEDIKINET                          /00083802/ [Concomitant]
     Active Substance: METHYLPHENIDATE
     Indication: ATTENTION DEFICIT/HYPERACTIVITY DISORDER
     Dosage: 30 MG, DAILY
     Route: 048
     Dates: start: 201712, end: 20180207
  2. STRATTERA [Suspect]
     Active Substance: ATOMOXETINE HYDROCHLORIDE
     Indication: ATTENTION DEFICIT/HYPERACTIVITY DISORDER
     Dosage: 100 MG, DAILY
     Route: 048
     Dates: start: 201612, end: 20180207

REACTIONS (3)
  - Depression [Fatal]
  - Completed suicide [Fatal]
  - Suicidal ideation [Fatal]
